FAERS Safety Report 16297909 (Version 1)
Quarter: 2019Q2

REPORT INFORMATION
  Report Type: Spontaneous
  Country: CA (occurrence: CA)
  Receive Date: 20190510
  Receipt Date: 20190510
  Transmission Date: 20190711
  Serious: Yes (Other)
  Sender: FDA-Public Use
  Company Number: CA-TEVA-2019-CA-1047437

PATIENT
  Age: 18 Year
  Sex: Female
  Weight: 43.13 kg

DRUGS (3)
  1. CYKLOKAPRON 500 MG [Concomitant]
  2. MONTELUKAST [Suspect]
     Active Substance: MONTELUKAST SODIUM
     Dosage: 10 MILLIGRAM DAILY;
     Route: 048
  3. VYVANSE [Concomitant]
     Active Substance: LISDEXAMFETAMINE DIMESYLATE

REACTIONS (4)
  - Attention deficit/hyperactivity disorder [Recovered/Resolved]
  - Asthma [Recovered/Resolved]
  - Feeling abnormal [Recovered/Resolved]
  - Blood disorder [Recovered/Resolved]
